FAERS Safety Report 19363315 (Version 6)
Quarter: 2022Q1

REPORT INFORMATION
  Report Type: Report from Study
  Country: FR (occurrence: None)
  Receive Date: 20210602
  Receipt Date: 20220214
  Transmission Date: 20220423
  Serious: Yes (Other)
  Sender: FDA-Public Use
  Company Number: FR-ROCHE-2839731

PATIENT
  Age: 68 Year
  Sex: Male
  Weight: 61 kg

DRUGS (10)
  1. CIBISATAMAB [Suspect]
     Active Substance: CIBISATAMAB
     Indication: Colorectal cancer
     Dosage: ON 03/DEC/2020, RECEIVED THE MOST RECENT DOSE (100 MG) FROM 2:10 TO 4:15 PM PRIOR TO SERIOUS ADVERSE
     Route: 042
     Dates: start: 20200818
  2. ATEZOLIZUMAB [Suspect]
     Active Substance: ATEZOLIZUMAB
     Indication: Colorectal cancer
     Dosage: ON 03/DEC/2020 12:13 PM PATIENT RECEIVED MOST RECENT DOSE OF STUDY DRUG PRIOR TO SAE. END DATE OF MO
     Route: 042
     Dates: start: 20200818
  3. OBINUTUZUMAB [Suspect]
     Active Substance: OBINUTUZUMAB
     Indication: Colorectal cancer
     Dosage: OBINUTUZUMAB WILL BE ADMINISTERED BY INTRAVENOUS (IV) INFUSION AS EITHER A SPLIT OR SINGLE DOSE APPR
     Route: 042
     Dates: start: 20200805
  4. PRIMPERAN [Concomitant]
     Active Substance: METOCLOPRAMIDE HYDROCHLORIDE
     Indication: Nausea
     Dates: start: 20200822
  5. PRIMPERAN [Concomitant]
     Active Substance: METOCLOPRAMIDE HYDROCHLORIDE
     Indication: Prophylaxis of nausea and vomiting
     Dates: start: 20201006
  6. DOLIPRANE [Concomitant]
     Active Substance: ACETAMINOPHEN
     Indication: Cytokine release syndrome
     Route: 048
     Dates: start: 20200820
  7. SODIUM BICARBONATE [Concomitant]
     Active Substance: SODIUM BICARBONATE
     Indication: Mucosal inflammation
     Dates: start: 20200825
  8. POLYETHYLENE GLYCOLS [Concomitant]
     Active Substance: POLYETHYLENE GLYCOLS
     Indication: Constipation
     Dates: start: 20200922
  9. FLUOROURACIL\IRINOTECAN\LEUCOVORIN [Concomitant]
     Active Substance: FLUOROURACIL\IRINOTECAN\LEUCOVORIN
     Route: 065
  10. AVASTIN [Concomitant]
     Active Substance: BEVACIZUMAB
     Dates: start: 20210517, end: 20210517

REACTIONS (1)
  - Thrombocytopenia [Recovered/Resolved]

NARRATIVE: CASE EVENT DATE: 20210518
